FAERS Safety Report 4957083-X (Version None)
Quarter: 2006Q1

REPORT INFORMATION
  Report Type: 
  Country: None (occurrence: None)
  Receive Date: 20060323
  Receipt Date: 20060313
  Transmission Date: 20060701
  Serious: Yes (Hospitalization, Other)
  Sender: FDA-Public Use
  Company Number: 2006035111

PATIENT
  Sex: Female
  Weight: 66.6788 kg

DRUGS (12)
  1. NEURONTIN [Suspect]
     Indication: MIGRAINE
  2. RELPAX [Suspect]
     Indication: MIGRAINE
  3. IMITREX [Suspect]
     Indication: MIGRAINE
  4. MONTELUKAST [Concomitant]
  5. TRAZODONE HCL [Concomitant]
  6. SALBUTAMOL [Concomitant]
  7. REBIF [Concomitant]
  8. ADVAIR DISKUS 100/50 [Concomitant]
  9. VITAMIN B-12 [Concomitant]
  10. LORAZEPAM [Concomitant]
  11. TOPAMAX [Concomitant]
  12. LEXAPRO [Concomitant]

REACTIONS (10)
  - ARTHRALGIA [None]
  - ARTHROPATHY [None]
  - ASTHMA [None]
  - CONDITION AGGRAVATED [None]
  - DRUG INEFFECTIVE [None]
  - ECONOMIC PROBLEM [None]
  - FALL [None]
  - HYPOAESTHESIA [None]
  - MULTIPLE SCLEROSIS [None]
  - OXYGEN SATURATION DECREASED [None]
